FAERS Safety Report 12752278 (Version 2)
Quarter: 2017Q1

REPORT INFORMATION
  Report Type: Report from Study
  Country: HU (occurrence: HU)
  Receive Date: 20160915
  Receipt Date: 20170117
  Transmission Date: 20170428
  Serious: Yes (Other)
  Sender: FDA-Public Use
  Company Number: HU-ASTRAZENECA-2016SE95626

PATIENT
  Age: 12093 Day
  Sex: Male

DRUGS (4)
  1. RINGER [Concomitant]
     Dosage: 500 ML
     Route: 065
  2. SALSOL [Concomitant]
     Active Substance: ALBUTEROL SULFATE
  3. ACTRAPID [Concomitant]
     Active Substance: INSULIN HUMAN
     Dosage: 6 U BOLUS
     Route: 065
  4. DAPAGLIFLOZIN [Suspect]
     Active Substance: DAPAGLIFLOZIN
     Indication: TYPE 1 DIABETES MELLITUS
     Route: 048
     Dates: start: 20160615, end: 20160906

REACTIONS (1)
  - Ketosis [Recovered/Resolved]

NARRATIVE: CASE EVENT DATE: 20160907
